FAERS Safety Report 4672391-8 (Version None)
Quarter: 2005Q2

REPORT INFORMATION
  Report Type: 
  Country: None (occurrence: None)
  Receive Date: 20050524
  Receipt Date: 20041013
  Transmission Date: 20051028
  Serious: Yes (Other)
  Sender: FDA-Public Use
  Company Number: JP-BRISTOL-MYERS SQUIBB COMPANY-12731691

PATIENT
  Age: 64 Year
  Sex: Female

DRUGS (2)
  1. TAXOL [Suspect]
     Indication: OVARIAN CANCER
     Dosage: START DATE:  UNKNOWN
     Route: 042
     Dates: start: 20040910, end: 20040910
  2. PARAPLATIN [Suspect]
     Indication: OVARIAN CANCER
     Dosage: START DATE:  UNKNOWN
     Route: 042
     Dates: start: 20040910, end: 20040910

REACTIONS (2)
  - HERPES SIMPLEX OPHTHALMIC [None]
  - OTOTOXICITY [None]
